FAERS Safety Report 4921468-8 (Version None)
Quarter: 2006Q1

REPORT INFORMATION
  Report Type: 
  Country: None (occurrence: None)
  Receive Date: 20060224
  Receipt Date: 20060213
  Transmission Date: 20060701
  Serious: Yes (Other)
  Sender: FDA-Public Use
  Company Number: PHEH2006US02130

PATIENT
  Age: 54 Year
  Sex: Male

DRUGS (2)
  1. DIOVAN [Suspect]
     Dates: start: 20030101, end: 20050101
  2. DIOVAN HCT [Suspect]
     Indication: HYPERTENSION
     Dosage: 160/12.5 MG
     Dates: start: 20050101, end: 20050101

REACTIONS (3)
  - BLOOD TESTOSTERONE DECREASED [None]
  - PROSTATIC MASS [None]
  - SURGERY [None]
